FAERS Safety Report 13858349 (Version 1)
Quarter: 2017Q3

REPORT INFORMATION
  Report Type: Spontaneous
  Country: US (occurrence: US)
  Receive Date: 20170810
  Receipt Date: 20170810
  Transmission Date: 20171127
  Serious: Yes (Hospitalization, Disabling, Other)
  Sender: FDA-Public Use
  Company Number: None

PATIENT
  Age: 58 Year
  Sex: Female
  Weight: 59.4 kg

DRUGS (1)
  1. MULTIHANCE [Suspect]
     Active Substance: GADOBENATE DIMEGLUMINE
     Indication: NUCLEAR MAGNETIC RESONANCE IMAGING

REACTIONS (16)
  - Bone pain [None]
  - Autoimmune thyroiditis [None]
  - Feeling abnormal [None]
  - Tinnitus [None]
  - Contrast media reaction [None]
  - Fatigue [None]
  - Nausea [None]
  - Weight decreased [None]
  - Influenza like illness [None]
  - Blood heavy metal increased [None]
  - Toxicity to various agents [None]
  - Asthenia [None]
  - Fibromyalgia [None]
  - Oesophageal candidiasis [None]
  - Candida infection [None]
  - Headache [None]

NARRATIVE: CASE EVENT DATE: 20160211
